FAERS Safety Report 19309189 (Version 1)
Quarter: 2021Q2

REPORT INFORMATION
  Report Type: Other
  Country: CA (occurrence: CA)
  Receive Date: 20210526
  Receipt Date: 20210526
  Transmission Date: 20210717
  Serious: Yes (Other)
  Sender: FDA-Public Use
  Company Number: CA-ROCHE-2344974

PATIENT
  Age: 33 Year
  Sex: Female

DRUGS (30)
  1. AVENTYL [Concomitant]
     Active Substance: NORTRIPTYLINE HYDROCHLORIDE
  2. GARLIC. [Concomitant]
     Active Substance: GARLIC
  3. CANNABIDIOL [Concomitant]
     Active Substance: CANNABIDIOL
     Indication: MUSCLE TIGHTNESS
  4. MAGNESIUM BISGLYCINATE [Concomitant]
  5. CONCERTA [Concomitant]
     Active Substance: METHYLPHENIDATE HYDROCHLORIDE
  6. GINGER. [Concomitant]
     Active Substance: GINGER
  7. VITAMIN B12 [Concomitant]
     Active Substance: CYANOCOBALAMIN
  8. TYLENOL [Concomitant]
     Active Substance: ACETAMINOPHEN
     Indication: PREMEDICATION
     Route: 048
     Dates: start: 20190620
  9. RITUXAN [Suspect]
     Active Substance: RITUXIMAB
     Indication: CENTRAL NERVOUS SYSTEM INFLAMMATION
     Route: 041
     Dates: start: 20190620
  10. TURMERIC [Concomitant]
     Active Substance: HERBALS\TURMERIC
  11. BOTOX [Concomitant]
     Active Substance: ONABOTULINUMTOXINA
     Indication: MUSCLE TIGHTNESS
  12. THERACURMIN [Concomitant]
     Active Substance: CURCUMIN\DIETARY SUPPLEMENT
  13. VISANNE [Concomitant]
     Active Substance: DIENOGEST
  14. GABAPENTIN. [Concomitant]
     Active Substance: GABAPENTIN
  15. BOTOX [Concomitant]
     Active Substance: ONABOTULINUMTOXINA
     Indication: HEADACHE
  16. LIDOCAINE. [Concomitant]
     Active Substance: LIDOCAINE
  17. FISH OIL [Concomitant]
     Active Substance: FISH OIL
  18. MELATONIN [Concomitant]
     Active Substance: MELATONIN
  19. IRON [Concomitant]
     Active Substance: IRON
  20. ATIVAN [Concomitant]
     Active Substance: LORAZEPAM
  21. BACLOFEN. [Concomitant]
     Active Substance: BACLOFEN
  22. BENADRYL [Concomitant]
     Active Substance: DIPHENHYDRAMINE HYDROCHLORIDE
     Indication: PREMEDICATION
     Route: 048
     Dates: start: 20190620
  23. MAGNESIUM [Concomitant]
     Active Substance: MAGNESIUM
  24. TRAZODONE [Concomitant]
     Active Substance: TRAZODONE HYDROCHLORIDE
  25. POTASSIUM [Concomitant]
     Active Substance: POTASSIUM
  26. OMEGA 3 [Concomitant]
     Active Substance: OMEGA-3 FATTY ACIDS
  27. SOLU?MEDROL [Concomitant]
     Active Substance: METHYLPREDNISOLONE SODIUM SUCCINATE
     Indication: PREMEDICATION
     Route: 042
     Dates: start: 20190620
  28. ZINC. [Concomitant]
     Active Substance: ZINC
  29. LION^S MANE [Concomitant]
  30. CYCLOBENZAPRINE. [Concomitant]
     Active Substance: CYCLOBENZAPRINE
     Indication: MUSCLE TIGHTNESS

REACTIONS (17)
  - Autism spectrum disorder [Unknown]
  - Blood pressure diastolic decreased [Unknown]
  - Heart rate increased [Not Recovered/Not Resolved]
  - Infusion related reaction [Recovered/Resolved]
  - Weight decreased [Recovering/Resolving]
  - Suspected COVID-19 [Unknown]
  - Attention deficit hyperactivity disorder [Unknown]
  - Blood pressure diastolic abnormal [Unknown]
  - Body temperature increased [Unknown]
  - Malaise [Unknown]
  - Decreased appetite [Unknown]
  - Relapsing multiple sclerosis [Unknown]
  - Feeling abnormal [Unknown]
  - Rheumatoid arthritis [Not Recovered/Not Resolved]
  - Off label use [Unknown]
  - Hypotension [Unknown]
  - Weight fluctuation [Unknown]

NARRATIVE: CASE EVENT DATE: 20190620
